FAERS Safety Report 16653423 (Version 2)
Quarter: 2020Q2

REPORT INFORMATION
  Report Type: Spontaneous
  Country: US (occurrence: US)
  Receive Date: 20190731
  Receipt Date: 20200414
  Transmission Date: 20200713
  Serious: Yes (Other)
  Sender: FDA-Public Use
  Company Number: US-GILEAD-2019-0420315

PATIENT
  Sex: Male

DRUGS (36)
  1. VENTOLIN HFA [Concomitant]
     Active Substance: ALBUTEROL SULFATE
  2. PROVENTIL HFA [Concomitant]
     Active Substance: ALBUTEROL SULFATE
  3. DOCUSATE SODIUM. [Concomitant]
     Active Substance: DOCUSATE SODIUM
  4. HYDROXYZINE HCL [Concomitant]
     Active Substance: HYDROXYZINE HYDROCHLORIDE
  5. VOLTAREN [DICLOFENAC] [Concomitant]
     Active Substance: DICLOFENAC SODIUM
  6. PREZISTA [Concomitant]
     Active Substance: DARUNAVIR ETHANOLATE
  7. TRIAMCINOLONE ACETONIDE. [Concomitant]
     Active Substance: TRIAMCINOLONE ACETONIDE
  8. SUSTIVA [Concomitant]
     Active Substance: EFAVIRENZ
  9. PROMETHAZINE [Concomitant]
     Active Substance: PROMETHAZINE HYDROCHLORIDE
  10. FLUCONAZOLE. [Concomitant]
     Active Substance: FLUCONAZOLE
  11. ALBUTEROL SULFATE. [Concomitant]
     Active Substance: ALBUTEROL SULFATE
  12. CLOTRIMAZOLE. [Concomitant]
     Active Substance: CLOTRIMAZOLE
  13. CAPSAICIN. [Concomitant]
     Active Substance: CAPSAICIN
  14. ACETAMINOPHEN AND CODEINE [Concomitant]
     Active Substance: ACETAMINOPHEN\CODEINE PHOSPHATE
  15. KETOCONAZOLE. [Concomitant]
     Active Substance: KETOCONAZOLE
  16. MICONAZOLE. [Concomitant]
     Active Substance: MICONAZOLE
  17. SYMBICORT [Concomitant]
     Active Substance: BUDESONIDE\FORMOTEROL FUMARATE DIHYDRATE
  18. Q-PAP [Concomitant]
     Active Substance: ACETAMINOPHEN
  19. DOXYCYCLINE HYCLATE. [Concomitant]
     Active Substance: DOXYCYCLINE HYCLATE
  20. DIPHENOXYLATE/ATROPINE [Concomitant]
     Active Substance: ATROPINE\DIPHENOXYLATE
  21. NICOTINE POLACRILEX [Concomitant]
     Active Substance: NICOTINE
  22. NORVIR [Concomitant]
     Active Substance: RITONAVIR
  23. AUGMENTIN [Concomitant]
     Active Substance: AMOXICILLIN\CLAVULANATE POTASSIUM
  24. QVAR [Concomitant]
     Active Substance: BECLOMETHASONE DIPROPIONATE
  25. CYCLOBENZAPRINE. [Concomitant]
     Active Substance: CYCLOBENZAPRINE
  26. VIRAMUNE XR [Concomitant]
     Active Substance: NEVIRAPINE
  27. AZITHROMYCIN ANHYDROUS. [Concomitant]
     Active Substance: AZITHROMYCIN ANHYDROUS
  28. TRUVADA [Suspect]
     Active Substance: EMTRICITABINE\TENOFOVIR DISOPROXIL FUMARATE
     Indication: HIV INFECTION
     Dosage: 1 DOSAGE FORM (200-300 MG), QD
     Route: 048
     Dates: start: 20080715, end: 20190215
  29. PROAIR HFA [Concomitant]
     Active Substance: ALBUTEROL SULFATE
  30. TERBINAFINE. [Concomitant]
     Active Substance: TERBINAFINE
  31. DESCOVY [Concomitant]
     Active Substance: EMTRICITABINE\TENOFOVIR ALAFENAMIDE FUMARATE
     Indication: HIV INFECTION
     Dosage: 1 DOSAGE FORM (200-25 MG), QD
     Route: 048
  32. IBUPROFEN. [Concomitant]
     Active Substance: IBUPROFEN
  33. INVIRASE [Concomitant]
     Active Substance: SAQUINAVIR MESYLATE
  34. TRAMADOL. [Concomitant]
     Active Substance: TRAMADOL
  35. NAPROXEN. [Concomitant]
     Active Substance: NAPROXEN
  36. SUCRALFATE. [Concomitant]
     Active Substance: SUCRALFATE

REACTIONS (10)
  - Anhedonia [Unknown]
  - Anxiety [Unknown]
  - Multiple fractures [Unknown]
  - Bone density decreased [Not Recovered/Not Resolved]
  - Tooth loss [Not Recovered/Not Resolved]
  - Pain [Unknown]
  - Emotional distress [Unknown]
  - Osteonecrosis [Not Recovered/Not Resolved]
  - Patella fracture [Recovered/Resolved]
  - Economic problem [Unknown]

NARRATIVE: CASE EVENT DATE: 2013
